FAERS Safety Report 17770479 (Version 1)
Quarter: 2020Q3

REPORT INFORMATION
  Report Type: Spontaneous
  Country: GB (occurrence: GB)
  Receive Date: 20200512
  Receipt Date: 20200512
  Transmission Date: 20201104
  Serious: Yes (Other)
  Sender: FDA-Public Use
  Company Number: NVSC2020GB127682

PATIENT

DRUGS (1)
  1. FERROUS SULFATE. [Suspect]
     Active Substance: FERROUS SULFATE
     Indication: ANAEMIA
     Dosage: STRENGTH: 200 MG; 200 MG? 3 TIMES A DAY
     Route: 065

REACTIONS (4)
  - Constipation [Unknown]
  - Abnormal faeces [Unknown]
  - Abdominal distension [Unknown]
  - Pneumothorax [Unknown]
